FAERS Safety Report 20071384 (Version 2)
Quarter: 2022Q1

REPORT INFORMATION
  Report Type: Report from Study
  Country: US (occurrence: US)
  Receive Date: 20211115
  Receipt Date: 20220105
  Transmission Date: 20220424
  Serious: Yes (Hospitalization)
  Sender: FDA-Public Use
  Company Number: US-ABBVIE-21K-163-4159124-00

PATIENT
  Sex: Male

DRUGS (12)
  1. DUOPA [Suspect]
     Active Substance: CARBIDOPA\LEVODOPA
     Indication: Product used for unknown indication
     Route: 050
     Dates: start: 20180117
  2. DUOPA [Suspect]
     Active Substance: CARBIDOPA\LEVODOPA
     Route: 050
  3. SELEGILINE [Concomitant]
     Active Substance: SELEGILINE
     Indication: Product used for unknown indication
     Route: 048
  4. MINERALS\VITAMINS [Concomitant]
     Active Substance: MINERALS\VITAMINS
     Indication: Product used for unknown indication
     Dosage: 143.20 TO 226 MG
     Route: 048
  5. PAROXETINE [Concomitant]
     Active Substance: PAROXETINE
     Indication: Product used for unknown indication
     Route: 048
  6. RASAGILINE MESYLATE [Concomitant]
     Active Substance: RASAGILINE MESYLATE
     Indication: Product used for unknown indication
     Route: 048
  7. OCUVITE [Concomitant]
     Active Substance: VITAMINS
     Indication: Product used for unknown indication
     Dosage: 50-15-4.5 MG
     Route: 048
  8. CARBIDOPA\LEVODOPA [Concomitant]
     Active Substance: CARBIDOPA\LEVODOPA
     Indication: Product used for unknown indication
     Dosage: 25-100 MG
     Route: 048
  9. COMTAN [Concomitant]
     Active Substance: ENTACAPONE
     Indication: Product used for unknown indication
     Route: 048
  10. CARBIDOPA\LEVODOPA [Concomitant]
     Active Substance: CARBIDOPA\LEVODOPA
     Indication: Product used for unknown indication
     Dosage: 50-200 MG
     Route: 048
  11. MINERALS\VITAMINS [Concomitant]
     Active Substance: MINERALS\VITAMINS
     Indication: Product used for unknown indication
     Route: 048
  12. SINEMET [Concomitant]
     Active Substance: CARBIDOPA\LEVODOPA
     Indication: Product used for unknown indication

REACTIONS (3)
  - Renal cancer [Recovered/Resolved]
  - Device colour issue [Unknown]
  - Pain [Unknown]

NARRATIVE: CASE EVENT DATE: 20210101
